FAERS Safety Report 24077136 (Version 1)
Quarter: 2024Q3

REPORT INFORMATION
  Report Type: Spontaneous
  Country: GB (occurrence: GB)
  Receive Date: 20240711
  Receipt Date: 20240711
  Transmission Date: 20241016
  Serious: Yes (Other)
  Sender: MSN LABORATORIES
  Company Number: GB-MHRA-EMIS-3831-f1ebf208-ad70-49fe-9e22-72ebf57f5e83

PATIENT

DRUGS (4)
  1. ATORVASTATIN [Suspect]
     Active Substance: ATORVASTATIN
     Indication: Product used for unknown indication
     Route: 065
     Dates: start: 20240529, end: 20240624
  2. BETAMETHASONE [Concomitant]
     Active Substance: BETAMETHASONE\BETAMETHASONE DIPROPIONATE
     Indication: Product used for unknown indication
     Dosage: 100G. APPLY THINLY TWICE A DAY FOR 1 WEEK
     Route: 065
     Dates: start: 20240529
  3. CROTAMITON [Concomitant]
     Active Substance: CROTAMITON
     Indication: Pruritus
     Dosage: 100G. APPLY TWO OR THREE TIMES DAILY (FOR ITCH)
     Route: 065
     Dates: start: 20240529
  4. EZETIMIBE [Concomitant]
     Active Substance: EZETIMIBE
     Indication: Product used for unknown indication
     Route: 065
     Dates: start: 20240624

REACTIONS (4)
  - Chromaturia [Recovered/Resolved]
  - Dysuria [Recovered/Resolved]
  - Urine abnormality [Recovered/Resolved]
  - Urinary tract infection [Recovered/Resolved]
